FAERS Safety Report 9602873 (Version 4)
Quarter: 2013Q4

REPORT INFORMATION
  Report Type: Report from Study
  Country: CA (occurrence: CA)
  Receive Date: 20131007
  Receipt Date: 20131101
  Transmission Date: 20140711
  Serious: Yes (Hospitalization)
  Sender: FDA-Public Use
  Company Number: CA-ABBVIE-13P-028-1148156-00

PATIENT
  Sex: Female

DRUGS (2)
  1. HUMIRA [Suspect]
     Indication: RHEUMATOID ARTHRITIS
     Route: 058
     Dates: start: 20090601, end: 20130923
  2. HUMIRA [Suspect]
     Route: 058

REACTIONS (3)
  - Fall [Unknown]
  - Asthenia [Not Recovered/Not Resolved]
  - Hypersomnia [Unknown]
